FAERS Safety Report 8492217-4 (Version None)
Quarter: 2012Q3

REPORT INFORMATION
  Report Type: 
  Country: None (occurrence: None)
  Receive Date: 20120706
  Receipt Date: 20120627
  Transmission Date: 20120928
  Serious: Yes (Hospitalization)
  Sender: FDA-Public Use
  Company Number: FR-ABBOTT-12P-056-0947213-00

PATIENT
  Sex: Female

DRUGS (4)
  1. HUMIRA [Suspect]
     Indication: ANKYLOSING SPONDYLITIS
     Route: 058
     Dates: start: 20110901, end: 20120501
  2. ACETAMINOPHEN [Suspect]
     Indication: PRODUCT USED FOR UNKNOWN INDICATION
     Route: 048
  3. LANSOPRAZOLE [Suspect]
     Indication: PRODUCT USED FOR UNKNOWN INDICATION
  4. INDOMETHACIN [Suspect]
     Indication: ANKYLOSING SPONDYLITIS
     Route: 048

REACTIONS (2)
  - DRUG INEFFECTIVE [None]
  - OSTEONECROSIS [None]
